FAERS Safety Report 7626033-X (Version None)
Quarter: 2011Q3

REPORT INFORMATION
  Report Type: 
  Country: None (occurrence: None)
  Receive Date: 20110721
  Receipt Date: 20110707
  Transmission Date: 20111222
  Serious: Yes (Death)
  Sender: FDA-Public Use
  Company Number: US-PFIZER INC-2010001570

PATIENT
  Age: 19 Year
  Sex: Female

DRUGS (5)
  1. ACETAMINOPHEN [Suspect]
     Dosage: UNK
     Dates: end: 20080101
  2. OXYCODONE HCL [Suspect]
     Dosage: UNK
     Route: 048
     Dates: end: 20080101
  3. CITALOPRAM HYDROBROMIDE [Suspect]
     Dosage: UNK
     Dates: end: 20080101
  4. MARIJUANA [Suspect]
     Dosage: UNK
     Dates: end: 20080101
  5. ALPRAZOLAM [Suspect]
     Dosage: UNK
     Dates: end: 20080101

REACTIONS (3)
  - CARDIAC ARREST [None]
  - ACCIDENTAL EXPOSURE [None]
  - RESPIRATORY ARREST [None]
